FAERS Safety Report 13349533 (Version 1)
Quarter: 2017Q1

REPORT INFORMATION
  Report Type: Spontaneous
  Country: US (occurrence: US)
  Receive Date: 20170317
  Receipt Date: 20170317
  Transmission Date: 20170428
  Serious: Yes (Hospitalization)
  Sender: FDA-Public Use
  Company Number: None

PATIENT
  Age: 26 Year
  Sex: Male
  Weight: 93 kg

DRUGS (1)
  1. ISAVUCONAZONIUM SULFATE [Suspect]
     Active Substance: ISAVUCONAZONIUM SULFATE
     Indication: PNEUMONIA FUNGAL
     Route: 048
     Dates: start: 20160410, end: 20170310

REACTIONS (2)
  - Cough [None]
  - Dyspnoea [None]

NARRATIVE: CASE EVENT DATE: 20170310
